FAERS Safety Report 10663733 (Version 2)
Quarter: 2014Q4

REPORT INFORMATION
  Report Type: Spontaneous
  Country: GB (occurrence: GB)
  Receive Date: 20141219
  Receipt Date: 20141219
  Transmission Date: 20150529
  Serious: Yes (Death, Other)
  Sender: FDA-Public Use
  Company Number: GB-PFIZER INC-2005075182

PATIENT
  Age: 31 Year
  Sex: Male
  Weight: 100 kg

DRUGS (7)
  1. PETHIDINE [Concomitant]
     Active Substance: MEPERIDINE
     Route: 065
  2. GABAPENTIN. [Suspect]
     Active Substance: GABAPENTIN
     Indication: PAIN
     Dosage: 300MG SIX TIMES DAILY
     Route: 048
     Dates: start: 20020107
  3. METHADONE HYDROCHLORIDE. [Interacting]
     Active Substance: METHADONE HYDROCHLORIDE
     Indication: PAIN
     Dosage: 5-10MG
     Route: 048
     Dates: start: 20020115
  4. TRAMADOL [Concomitant]
     Active Substance: TRAMADOL
     Route: 065
  5. CO-PROXAMOL [Concomitant]
     Active Substance: ACETAMINOPHEN\PROPOXYPHENE HYDROCHLORIDE
     Route: 065
  6. DEBRISOQUINE [Interacting]
     Active Substance: DEBRISOQUIN
     Indication: PAIN
     Dosage: 10 MG
     Route: 065
     Dates: start: 20020107
  7. MORPHINE [Concomitant]
     Active Substance: MORPHINE
     Route: 065

REACTIONS (2)
  - Death [Fatal]
  - Drug interaction [Unknown]

NARRATIVE: CASE EVENT DATE: 20020119
